FAERS Safety Report 18806162 (Version 1)
Quarter: 2021Q1

REPORT INFORMATION
  Report Type: Spontaneous
  Country: US (occurrence: US)
  Receive Date: 20210128
  Receipt Date: 20210128
  Transmission Date: 20210419
  Serious: Yes (Other)
  Sender: FDA-Public Use
  Company Number: None

PATIENT
  Age: 61 Year
  Sex: Male
  Weight: 91 kg

DRUGS (2)
  1. EXENATIDE (EXENATIDE 2MG/PEN INJ, SUSP, SA) [Suspect]
     Active Substance: EXENATIDE
     Indication: DIABETES MELLITUS
     Route: 058
     Dates: start: 20150526
  2. VICTOZA [Suspect]
     Active Substance: LIRAGLUTIDE
     Indication: DIABETES MELLITUS
     Route: 058
     Dates: start: 20160123, end: 20190605

REACTIONS (5)
  - Injection site swelling [None]
  - Abdominal pain upper [None]
  - Adenocarcinoma [None]
  - Pancreatic carcinoma [None]
  - Metastases to liver [None]

NARRATIVE: CASE EVENT DATE: 20190719
